FAERS Safety Report 5463121-0 (Version None)
Quarter: 2007Q3

REPORT INFORMATION
  Report Type: 
  Country: None (occurrence: None)
  Receive Date: 20070920
  Receipt Date: 20070913
  Transmission Date: 20080115
  Serious: Yes (Death, Hospitalization)
  Sender: FDA-Public Use
  Company Number: KR-ASTRAZENECA-2006AP04090

PATIENT
  Age: 20320 Day
  Sex: Male

DRUGS (2)
  1. IRESSA [Suspect]
     Indication: NON-SMALL CELL LUNG CANCER STAGE IV
     Route: 048
     Dates: start: 20060706, end: 20060829
  2. DUPHALAC [Concomitant]
     Indication: CONSTIPATION PROPHYLAXIS
     Dosage: }1MTH PRIOR STO STUDY START
     Route: 048

REACTIONS (1)
  - INTERSTITIAL LUNG DISEASE [None]
